FAERS Safety Report 15216608 (Version 3)
Quarter: 2018Q3

REPORT INFORMATION
  Report Type: Spontaneous
  Country: US (occurrence: US)
  Receive Date: 20180730
  Receipt Date: 20180822
  Transmission Date: 20181010
  Serious: Yes (Other)
  Sender: FDA-Public Use
  Company Number: US-PFIZER INC-2018300727

PATIENT
  Age: 35 Year
  Sex: Female

DRUGS (3)
  1. MEDROXYPROGESTERONE ACETATE. [Suspect]
     Active Substance: MEDROXYPROGESTERONE ACETATE
     Indication: CONTRACEPTION
     Dosage: 150 MG, EVERY 3 MONTHS
     Route: 030
     Dates: start: 20180404
  2. FERROUS SULFATE. [Concomitant]
     Active Substance: FERROUS SULFATE
     Indication: IRON DEFICIENCY
     Dosage: 325 MG, AS NEEDED
     Dates: start: 20170804
  3. PRENATAL VITAMINS [Concomitant]
     Active Substance: VITAMINS
     Indication: SUPPLEMENTATION THERAPY
     Dosage: 1 DF, AS NEEDED (ONE DAILY)
     Dates: start: 20171212

REACTIONS (4)
  - Unwanted pregnancy [Unknown]
  - Drug ineffective [Unknown]
  - Menstruation irregular [Unknown]
  - Menorrhagia [Unknown]

NARRATIVE: CASE EVENT DATE: 201805
